FAERS Safety Report 5393513-X (Version None)
Quarter: 2007Q3

REPORT INFORMATION
  Report Type: 
  Country: None (occurrence: None)
  Receive Date: 20070719
  Receipt Date: 20070719
  Transmission Date: 20080115
  Serious: No
  Sender: FDA-Public Use
  Company Number: None

PATIENT
  Sex: Female

DRUGS (4)
  1. ULTRACET [Suspect]
     Indication: BREAST CANCER
     Dates: start: 20060101
  2. ULTRACET [Suspect]
     Indication: FIBROMYALGIA
     Dates: start: 20060101
  3. ULTRACET [Suspect]
     Indication: BREAST CANCER
     Dates: start: 20070101
  4. ULTRACET [Suspect]
     Indication: FIBROMYALGIA
     Dates: start: 20070101

REACTIONS (1)
  - RASH [None]
